FAERS Safety Report 9050922 (Version 1)
Quarter: 2013Q1

REPORT INFORMATION
  Report Type: Spontaneous
  Country: US (occurrence: US)
  Receive Date: 20130205
  Receipt Date: 20130205
  Transmission Date: 20140127
  Serious: No
  Sender: FDA-Public Use
  Company Number: US-BIOGENIDEC-2013BI009185

PATIENT
  Age: 66 None
  Sex: Female

DRUGS (2)
  1. AVONEX [Suspect]
     Indication: MULTIPLE SCLEROSIS
     Route: 030
  2. AVONEX [Suspect]
     Indication: MULTIPLE SCLEROSIS
     Route: 030

REACTIONS (5)
  - Nasopharyngitis [Recovered/Resolved]
  - Transient ischaemic attack [Unknown]
  - Cough [Unknown]
  - Syncope [Recovered/Resolved]
  - Decreased appetite [Unknown]
